FAERS Safety Report 11718256 (Version 1)
Quarter: 2015Q4

REPORT INFORMATION
  Report Type: Spontaneous
  Country: US (occurrence: None)
  Receive Date: 20151109
  Receipt Date: 20151109
  Transmission Date: 20160304
  Serious: Yes (Hospitalization)
  Sender: FDA-Public Use
  Company Number: None

PATIENT
  Age: 77 Year
  Sex: Male
  Weight: 114 kg

DRUGS (14)
  1. FERROUS SULFATE [Concomitant]
     Active Substance: FERROUS SULFATE\FERROUS SULFATE, DRIED
  2. MEMANTINE. [Concomitant]
     Active Substance: MEMANTINE
  3. CARVEDILOL. [Concomitant]
     Active Substance: CARVEDILOL
  4. LEVETIRACETAM. [Concomitant]
     Active Substance: LEVETIRACETAM
  5. NITROFURANTOIN. [Concomitant]
     Active Substance: NITROFURANTOIN
  6. ROSUVASTATIN [Concomitant]
     Active Substance: ROSUVASTATIN
  7. ASCORBIC ACID. [Concomitant]
     Active Substance: ASCORBIC ACID
  8. ERGOCALCIFEROL. [Concomitant]
     Active Substance: ERGOCALCIFEROL
  9. FUROSEMIDE. [Concomitant]
     Active Substance: FUROSEMIDE
  10. NATEGLINIDE. [Concomitant]
     Active Substance: NATEGLINIDE
  11. LEVOTHYROXINE. [Concomitant]
     Active Substance: LEVOTHYROXINE
  12. PANTOPRAZOLE [Concomitant]
     Active Substance: PANTOPRAZOLE SODIUM
  13. CANAGLIFLOZIN 100 MG JANSSEN [Suspect]
     Active Substance: CANAGLIFLOZIN
     Indication: TYPE 2 DIABETES MELLITUS
     Route: 048
  14. APIXABAN [Concomitant]
     Active Substance: APIXABAN

REACTIONS (3)
  - Acute kidney injury [None]
  - Metabolic acidosis [None]
  - Blood glucose increased [None]

NARRATIVE: CASE EVENT DATE: 20151107
